FAERS Safety Report 15667630 (Version 1)
Quarter: 2018Q4

REPORT INFORMATION
  Report Type: Report from Study
  Country: BR (occurrence: BR)
  Receive Date: 20181128
  Receipt Date: 20181128
  Transmission Date: 20190205
  Serious: Yes (Other)
  Sender: FDA-Public Use
  Company Number: BR-009507513-1810BRA005385

PATIENT
  Age: 54 Year
  Sex: Female
  Weight: 80 kg

DRUGS (1)
  1. JANUVIA [Suspect]
     Active Substance: SITAGLIPTIN PHOSPHATE
     Indication: TYPE 2 DIABETES MELLITUS
     Dosage: 1 TABLET BY THE MORNING
     Route: 048

REACTIONS (7)
  - Lactose intolerance [Unknown]
  - Blood glucose increased [Unknown]
  - Ulcer [Unknown]
  - Diabetes mellitus inadequate control [Recovered/Resolved]
  - Anxiety [Unknown]
  - Gluten sensitivity [Unknown]
  - Gastritis [Unknown]

NARRATIVE: CASE EVENT DATE: 2017
